FAERS Safety Report 15677875 (Version 1)
Quarter: 2018Q4

REPORT INFORMATION
  Report Type: Spontaneous
  Country: BR (occurrence: BR)
  Receive Date: 20181130
  Receipt Date: 20181130
  Transmission Date: 20190205
  Serious: Yes (Death, Hospitalization, Other)
  Sender: FDA-Public Use
  Company Number: BR-009507513-1811BRA012006

PATIENT
  Sex: Female

DRUGS (1)
  1. KEYTRUDA [Suspect]
     Active Substance: PEMBROLIZUMAB

REACTIONS (6)
  - Death [Fatal]
  - Ecchymosis [Unknown]
  - Septic shock [Unknown]
  - Asthenia [Unknown]
  - Jaundice [Unknown]
  - Karnofsky scale worsened [Unknown]
